FAERS Safety Report 7564816-5 (Version None)
Quarter: 2011Q2

REPORT INFORMATION
  Report Type: 
  Country: None (occurrence: None)
  Receive Date: 20110622
  Receipt Date: 20101215
  Transmission Date: 20111010
  Serious: Yes (Other)
  Sender: FDA-Public Use
  Company Number: US-MYLANLABS-2010S1022723

PATIENT
  Age: 33 Year
  Sex: Female

DRUGS (4)
  1. CLOZAPINE [Suspect]
     Route: 048
     Dates: start: 20101210
  2. RITALIN [Concomitant]
     Dosage: USING 10MG TABLET X 2 B.I.D.
  3. DEPAKOTE [Concomitant]
  4. CLOZAPINE [Suspect]
     Indication: SCHIZOPHRENIA
     Route: 048
     Dates: end: 20101208

REACTIONS (1)
  - GRANULOCYTOPENIA [None]
